FAERS Safety Report 22291774 (Version 1)
Quarter: 2023Q2

REPORT INFORMATION
  Report Type: Spontaneous
  Country: US (occurrence: None)
  Receive Date: 20230505
  Receipt Date: 20230505
  Transmission Date: 20230722
  Serious: Yes (Other)
  Sender: FDA-Public Use
  Company Number: None

PATIENT
  Age: 61 Year
  Sex: Female
  Weight: 179 kg

DRUGS (7)
  1. PROLIA [Suspect]
     Active Substance: DENOSUMAB
     Indication: COVID-19 prophylaxis
     Dates: start: 20210401, end: 20230501
  2. PROLIA [Suspect]
     Active Substance: DENOSUMAB
     Indication: Adverse drug reaction
  3. BUPROPION [Concomitant]
     Active Substance: BUPROPION
  4. ASTEPRO [Concomitant]
     Active Substance: AZELASTINE HYDROCHLORIDE
  5. VITAMIN D3 [Concomitant]
     Active Substance: CHOLECALCIFEROL
  6. MAGNESIUM [Concomitant]
     Active Substance: MAGNESIUM
  7. MELATONIN [Concomitant]
     Active Substance: MELATONIN

REACTIONS (8)
  - Rash erythematous [None]
  - Haematochezia [None]
  - Large intestine polyp [None]
  - Post vaccination syndrome [None]
  - Arthralgia [None]
  - Back pain [None]
  - Therapy cessation [None]
  - Legal problem [None]

NARRATIVE: CASE EVENT DATE: 20210510
